FAERS Safety Report 16447358 (Version 2)
Quarter: 2019Q2

REPORT INFORMATION
  Report Type: Spontaneous
  Country: SI (occurrence: SI)
  Receive Date: 20190618
  Receipt Date: 20190624
  Transmission Date: 20190711
  Serious: Yes (Other)
  Sender: FDA-Public Use
  Company Number: SI-AMGEN-SVNSP2019094928

PATIENT
  Age: 77 Year
  Sex: Female
  Weight: 62 kg

DRUGS (9)
  1. ACTONEL [Concomitant]
     Active Substance: RISEDRONATE SODIUM
     Dosage: 75 MILLIGRAM, QMO
  2. ENBREL [Suspect]
     Active Substance: ETANERCEPT
     Indication: RHEUMATOID ARTHRITIS
     Dosage: 50 MILLIGRAM, QWK
     Route: 058
     Dates: start: 20170117, end: 20190501
  3. ASPIRIN PROTECT [Concomitant]
     Active Substance: ASPIRIN
     Dosage: 100 MILLIGRAM, QD
  4. SPIRIVA [Concomitant]
     Active Substance: TIOTROPIUM BROMIDE MONOHYDRATE
     Dosage: 18 MICROGRAM, QD
  5. METHOTREXAT [METHOTREXATE] [Suspect]
     Active Substance: METHOTREXATE
     Indication: RHEUMATOID ARTHRITIS
     Dosage: 15 MILLIGRAM, QWK
     Route: 065
  6. NEBILET [Concomitant]
     Active Substance: NEBIVOLOL
     Dosage: 2.5 MILLIGRAM, QD
  7. CALCIUM CARBONATE. [Concomitant]
     Active Substance: CALCIUM CARBONATE
     Dosage: 1 GRAM, QD
  8. FOLACIN [FOLIC ACID] [Concomitant]
     Active Substance: FOLIC ACID
     Dosage: 5 MILLIGRAM, QD
  9. PLIVIT D3 [Concomitant]
     Active Substance: CHOLECALCIFEROL
     Dosage: 10000 MILLIGRAM, QWK

REACTIONS (1)
  - Squamous cell carcinoma of lung [Not Recovered/Not Resolved]

NARRATIVE: CASE EVENT DATE: 20190505
